FAERS Safety Report 4902571-5 (Version None)
Quarter: 2006Q1

REPORT INFORMATION
  Report Type: 
  Country: None (occurrence: None)
  Receive Date: 20060202
  Receipt Date: 20060119
  Transmission Date: 20060701
  Serious: Yes (Hospitalization)
  Sender: FDA-Public Use
  Company Number: 2006P1000042

PATIENT
  Age: 73 Year
  Sex: Male
  Weight: 80 kg

DRUGS (6)
  1. RETEPLASE (RETEPLASE) [Suspect]
     Indication: ACUTE MYOCARDIAL INFARCTION
     Dosage: IV
     Route: 042
     Dates: start: 20060110, end: 20060110
  2. ABCIXIMAB (ABCIXIMAB) [Suspect]
     Indication: ACUTE MYOCARDIAL INFARCTION
     Dosage: IV
     Route: 042
     Dates: start: 20060110, end: 20060110
  3. ACETYLSALICYLATE [Concomitant]
  4. CALCIUM GLUCONATE [Concomitant]
  5. CLOPIDOGREL [Concomitant]
  6. PANTOPRAZOLE [Concomitant]

REACTIONS (1)
  - CATHETER SITE HAEMATOMA [None]
